FAERS Safety Report 4971418-3 (Version None)
Quarter: 2006Q2

REPORT INFORMATION
  Report Type: 
  Country: None (occurrence: None)
  Receive Date: 20060413
  Receipt Date: 20060208
  Transmission Date: 20061013
  Serious: Yes (Hospitalization, Other)
  Sender: FDA-Public Use
  Company Number: FR-ABBOTT-06P-056-0324455-00

PATIENT
  Age: 58 Year
  Sex: Male
  Weight: 60 kg

DRUGS (7)
  1. HUMIRA [Suspect]
     Indication: POLYARTHRITIS
     Route: 058
     Dates: start: 20040126
  2. HUMIRA [Suspect]
     Indication: RHEUMATOID ARTHRITIS
  3. PIROXICAM [Suspect]
     Indication: RHEUMATOID ARTHRITIS
     Dates: start: 20050501
  4. PIROXICAM [Suspect]
     Indication: POLYARTHRITIS
  5. PANTOPRAZOLE [Concomitant]
     Indication: DRUG USE FOR UNKNOWN INDICATION
  6. METHOTREXATE [Concomitant]
     Indication: POLYARTHRITIS
  7. METHOTREXATE [Concomitant]
     Indication: RHEUMATOID ARTHRITIS

REACTIONS (7)
  - CONGESTIVE CARDIOMYOPATHY [None]
  - CORONARY ARTERY STENOSIS [None]
  - HYPERHIDROSIS [None]
  - MITRAL VALVE INCOMPETENCE [None]
  - PALLOR [None]
  - SYNCOPE [None]
  - TACHYCARDIA [None]
